FAERS Safety Report 8545844-X (Version None)
Quarter: 2012Q3

REPORT INFORMATION
  Report Type: 
  Country: None (occurrence: None)
  Receive Date: 20120727
  Receipt Date: 20111110
  Transmission Date: 20120928
  Serious: No
  Sender: FDA-Public Use
  Company Number: US-ASTRAZENECA-2011SE68986

PATIENT
  Age: 21 Year
  Sex: Female
  Weight: 63.5 kg

DRUGS (9)
  1. MIRTAZAPIN OR REMERON [Concomitant]
     Indication: BIPOLAR DISORDER
  2. SEROQUEL XR [Suspect]
     Indication: BIPOLAR DISORDER
     Route: 048
     Dates: start: 20100101
  3. GABAPENTIN [Concomitant]
     Indication: MUSCLE SPASMS
  4. VICODIN [Concomitant]
     Indication: MUSCLE SPASMS
  5. MIRTAZAPIN OR REMERON [Concomitant]
     Indication: SLEEP DISORDER
  6. MIRTAZAPIN OR REMERON [Concomitant]
     Indication: DEPRESSION
  7. SEROQUEL XR [Suspect]
     Indication: DEPRESSION
     Route: 048
     Dates: start: 20100101
  8. SEROQUEL XR [Suspect]
     Indication: INSOMNIA
     Route: 048
     Dates: start: 20100101
  9. BIRTH CONTROL PILLS [Concomitant]
     Indication: CONTRACEPTION

REACTIONS (8)
  - FEELING ABNORMAL [None]
  - MEMORY IMPAIRMENT [None]
  - DECREASED APPETITE [None]
  - AFFECT LABILITY [None]
  - CRYING [None]
  - OFF LABEL USE [None]
  - MALAISE [None]
  - DRUG DOSE OMISSION [None]
